FAERS Safety Report 6383922-4 (Version None)
Quarter: 2009Q4

REPORT INFORMATION
  Report Type: 
  Country: None (occurrence: None)
  Receive Date: 20091001
  Receipt Date: 20090924
  Transmission Date: 20100525
  Serious: Yes (Hospitalization, Other)
  Sender: FDA-Public Use
  Company Number: US-BAYER-200914675BCC

PATIENT
  Age: 66 Year
  Sex: Female
  Weight: 104 kg

DRUGS (34)
  1. ASPIRIN [Suspect]
     Indication: DRUG USE FOR UNKNOWN INDICATION
     Dosage: TOTAL DAILY DOSE: 325 MG  UNIT DOSE: 325 MG
     Route: 048
  2. CLOPIDOGREL [Suspect]
     Indication: STENT PLACEMENT
     Route: 048
     Dates: start: 20090825, end: 20090908
  3. GABAPENTIN [Concomitant]
     Route: 048
  4. CLOTRIMAZOLE [Concomitant]
     Route: 048
  5. FLUCONAZOLE [Concomitant]
     Dosage: TOTAL DAILY DOSE: 150 MG
     Route: 048
  6. EZETIMIBE W/SIMVASTATIN [Concomitant]
     Dosage: DOSE: 10/25MG
     Route: 048
  7. VALSARTAN [Concomitant]
     Dosage: TOTAL DAILY DOSE: 80 MG
     Route: 048
  8. HYDROXYCHLOROQUINE [Concomitant]
     Dosage: TOTAL DAILY DOSE: 400 MG  UNIT DOSE: 200 MG
     Route: 048
  9. IPRATROPIUM BROMIDE W/ ALBUTEROL SULFATE [Concomitant]
     Dosage: DOSE: 2 PUFFS
     Route: 048
  10. FLUTICASONE PROPIONATE [Concomitant]
     Dosage: DOSE: 250/ 50 MCG
     Route: 048
  11. METOPROLOL [Concomitant]
     Dosage: TOTAL DAILY DOSE: 100 MG  UNIT DOSE: 50 MG
     Route: 048
  12. ALENDRONATE SODIUM [Concomitant]
     Dosage: TOTAL DAILY DOSE: 70 MG  UNIT DOSE: 70 MG
     Route: 048
  13. CALCIUM +VIT D [Concomitant]
     Dosage: DOSE: 600MG/400 UNITS
     Route: 048
  14. FAMOTIDINE [Concomitant]
     Dosage: TOTAL DAILY DOSE: 40 MG  UNIT DOSE: 20 MG
     Route: 048
  15. ALLOPURINOL [Concomitant]
     Dosage: TOTAL DAILY DOSE: 300 MG  UNIT DOSE: 300 MG
     Route: 048
  16. MYCOPHENOLATE MOFETIL [Concomitant]
     Dosage: TOTAL DAILY DOSE: 2000 MG  UNIT DOSE: 1000 MG
     Route: 048
  17. ISOPHANE [Concomitant]
     Route: 065
  18. INSULIN [Concomitant]
     Dosage: DOSE: SLIDING SCALE
     Route: 065
  19. FERROUS GLUCONATE [Concomitant]
     Dosage: TOTAL DAILY DOSE: 325 MG  UNIT DOSE: 325 MG
     Route: 048
  20. FUROSEMIDE [Concomitant]
     Dosage: TOTAL DAILY DOSE: 160 MG  UNIT DOSE: 80 MG
     Route: 048
  21. MAGNESIUM CHLORIDE ANHYDROUS [Concomitant]
     Dosage: TOTAL DAILY DOSE: 190 MG  UNIT DOSE: 190 MG
     Route: 048
  22. MULTI-VITAMINS [Concomitant]
     Route: 048
  23. POTASSIUM CHLORIDE [Concomitant]
     Dosage: TOTAL DAILY DOSE: 160 MEQ  UNIT DOSE: 80 MEQ
     Route: 048
  24. METOLAZONE [Concomitant]
     Dosage: TOTAL DAILY DOSE: 2.5 MG  UNIT DOSE: 2.5 MG
     Route: 065
  25. ISOSORBIDE MONONITRATE [Concomitant]
     Dosage: TOTAL DAILY DOSE: 30 MG  UNIT DOSE: 30 MG
     Route: 065
  26. NYSTATIN [Concomitant]
     Route: 061
  27. OXYBUTYNIN CHLORIDE [Concomitant]
     Dosage: DOSE: 2.5 - 5 MG
     Route: 065
  28. GLYCERYL TRINITRATE [Concomitant]
     Indication: CHEST PAIN
     Dosage: TOTAL DAILY DOSE: 0.4 MG  UNIT DOSE: 0.4 MG
     Route: 060
  29. PARACETAMOL [Concomitant]
     Route: 065
  30. ACETAMINOPHEN AND HYDROCODONE BITARTRATE [Concomitant]
     Route: 065
  31. ALPRAZOLAM [Concomitant]
     Dosage: UNIT DOSE: 0.25 MG
     Route: 065
  32. AMOXICILLIN [Concomitant]
     Dosage: TOTAL DAILY DOSE: 2 G
     Route: 065
  33. PREDNISONE [Concomitant]
     Dosage: TOTAL DAILY DOSE: 5 MG  UNIT DOSE: 5 MG
     Route: 048
  34. PRASUGREL [Concomitant]
     Indication: STENT PLACEMENT
     Route: 065

REACTIONS (4)
  - CONTUSION [None]
  - EPISTAXIS [None]
  - PLATELET COUNT DECREASED [None]
  - THROMBOTIC THROMBOCYTOPENIC PURPURA [None]
